FAERS Safety Report 14817059 (Version 7)
Quarter: 2018Q3

REPORT INFORMATION
  Report Type: Spontaneous
  Country: US (occurrence: US)
  Receive Date: 20180426
  Receipt Date: 20180912
  Transmission Date: 20181010
  Serious: Yes (Hospitalization, Other)
  Sender: FDA-Public Use
  Company Number: US-PFIZER INC-2018170339

PATIENT
  Age: 75 Year
  Sex: Female
  Weight: 63 kg

DRUGS (19)
  1. PROLIA [Concomitant]
     Active Substance: DENOSUMAB
     Indication: OSTEOPOROSIS
     Dosage: UNK, EVERY 6 MONTHS
  2. KLOR?CON [Concomitant]
     Active Substance: POTASSIUM CHLORIDE
     Dosage: 10 MEQ, DAILY
  3. PROPA [Concomitant]
     Dosage: 2 SPRAYS (DF), ONCE DAILY
  4. BUTRANS [Concomitant]
     Active Substance: BUPRENORPHINE
     Dosage: 1 PATCH (DF), WEEKLY
  5. AMLODIPINE BESILATE [Concomitant]
     Active Substance: AMLODIPINE BESYLATE
     Dosage: 5 MG, ONCE DAILY
  6. XELJANZ [Suspect]
     Active Substance: TOFACITINIB CITRATE
     Dosage: 5 MG, 1X/DAY
     Route: 048
  7. ONDANSETRON HCL [Concomitant]
     Active Substance: ONDANSETRON HYDROCHLORIDE
     Indication: NAUSEA
     Dosage: 4 MG, AS NEEDED
  8. OLOPATADINE. [Concomitant]
     Active Substance: OLOPATADINE
     Dosage: 2 SPRAYS (DF), TWICE DAILY
     Route: 045
  9. XELJANZ [Suspect]
     Active Substance: TOFACITINIB CITRATE
     Dosage: 5 MG, 3X/DAY
     Route: 048
  10. DICLOMINE [Concomitant]
     Dosage: 1 TO 2 DF, UNK (45 MINUTES BEFORE MEAL)
  11. DESIPRAMINE [Concomitant]
     Active Substance: DESIPRAMINE
     Dosage: 40 MG (4 TABLETS), ONCE DAILY (AT 7 PM)
  12. OMEPRAZOLE. [Concomitant]
     Active Substance: OMEPRAZOLE
     Dosage: 40 MG, DAILY
  13. PROAIR HFA [Concomitant]
     Active Substance: ALBUTEROL SULFATE
     Indication: ASTHMA
     Dosage: UNK
     Route: 055
  14. XELJANZ [Suspect]
     Active Substance: TOFACITINIB CITRATE
     Indication: RHEUMATOID ARTHRITIS
     Dosage: 5 MG, TWICE A DAY
     Route: 048
     Dates: start: 2017
  15. XELJANZ [Suspect]
     Active Substance: TOFACITINIB CITRATE
     Dosage: BACK ON THE SMALLER DOSE
     Route: 048
  16. FLUTICASONE PROPIONATE. [Concomitant]
     Active Substance: FLUTICASONE PROPIONATE
     Dosage: 2 SPRAYS (DF), ONCE DAILY
  17. DULERA [Concomitant]
     Active Substance: FORMOTEROL FUMARATE DIHYDRATE\MOMETASONE FUROATE
     Indication: ASTHMA
     Dosage: 2 PUFFS (DF), TWICE DAILY
  18. TRAMADOL + ACETAMINOFEN [Concomitant]
     Active Substance: ACETAMINOPHEN\TRAMADOL
     Dosage: 1 TABLET (DF), THRICE DAILY
  19. SULINDAC. [Concomitant]
     Active Substance: SULINDAC
     Dosage: 200 MG (ONE TABLET), DAILY (WITH FOOD)

REACTIONS (11)
  - Full blood count decreased [Recovering/Resolving]
  - Oxygen saturation decreased [Unknown]
  - Product use issue [Unknown]
  - Dizziness [Unknown]
  - Dyspnoea [Not Recovered/Not Resolved]
  - Bradycardia [Unknown]
  - Peripheral coldness [Unknown]
  - Extrasystoles [Not Recovered/Not Resolved]
  - Intentional product misuse [Unknown]
  - Pneumonia [Recovered/Resolved]
  - Drug ineffective [Unknown]

NARRATIVE: CASE EVENT DATE: 201712
